FAERS Safety Report 6268817-9 (Version None)
Quarter: 2009Q3

REPORT INFORMATION
  Report Type: 
  Country: None (occurrence: None)
  Receive Date: 20090710
  Receipt Date: 20090710
  Transmission Date: 20100115
  Serious: Yes (Other)
  Sender: FDA-Public Use
  Company Number: None

PATIENT
  Sex: Male
  Weight: 92.9874 kg

DRUGS (1)
  1. TRAVATAN [Suspect]
     Indication: OCULAR HYPERTENSION
     Dosage: ONE DROP ONCE IN EVENING OPHTHALMIC
     Route: 047
     Dates: start: 20090707, end: 20090708

REACTIONS (3)
  - EYE SWELLING [None]
  - LACRIMATION INCREASED [None]
  - OCULAR HYPERAEMIA [None]
